FAERS Safety Report 14074951 (Version 1)
Quarter: 2017Q4

REPORT INFORMATION
  Report Type: Spontaneous
  Country: US (occurrence: US)
  Receive Date: 20171010
  Receipt Date: 20171010
  Transmission Date: 20180321
  Serious: Yes (Hospitalization, Other)
  Sender: FDA-Public Use
  Company Number: US-SA-2017SA187325

PATIENT
  Age: 82 Year
  Sex: Female

DRUGS (1)
  1. ZANTAC [Suspect]
     Active Substance: RANITIDINE HYDROCHLORIDE
     Indication: DYSPEPSIA
     Route: 048

REACTIONS (8)
  - Insomnia [Unknown]
  - Weight decreased [Unknown]
  - Pollakiuria [Unknown]
  - Chest pain [Unknown]
  - Feeling abnormal [Unknown]
  - Fatigue [Unknown]
  - Impaired work ability [Unknown]
  - Eating disorder [Unknown]
